FAERS Safety Report 6479644-1 (Version None)
Quarter: 2009Q4

REPORT INFORMATION
  Report Type: 
  Country: None (occurrence: None)
  Receive Date: 20091207
  Receipt Date: 20091207
  Transmission Date: 20100525
  Serious: Yes (Other)
  Sender: FDA-Public Use
  Company Number: None

PATIENT
  Sex: Female
  Weight: 68.0396 kg

DRUGS (3)
  1. LEVOXYL [Suspect]
     Indication: HYPOTHYROIDISM
     Dosage: UP TO 200MCG DAILY PO
     Route: 048
  2. LEVOXYL [Suspect]
     Indication: THYROID CANCER
     Dosage: UP TO 200MCG DAILY PO
     Route: 048
  3. SYNTHROID [Suspect]
     Dosage: UP TO 200MCG DAILY PO
     Route: 048

REACTIONS (16)
  - ALOPECIA [None]
  - ARTHRALGIA [None]
  - CONSTIPATION [None]
  - DISTURBANCE IN ATTENTION [None]
  - DYSMENORRHOEA [None]
  - GAIT DISTURBANCE [None]
  - HEART RATE DECREASED [None]
  - HYPOTHYROIDISM [None]
  - INCREASED TENDENCY TO BRUISE [None]
  - MENORRHAGIA [None]
  - MOVEMENT DISORDER [None]
  - MUSCULAR WEAKNESS [None]
  - MYALGIA [None]
  - NO THERAPEUTIC RESPONSE [None]
  - TEMPERATURE INTOLERANCE [None]
  - WEIGHT INCREASED [None]
